FAERS Safety Report 5596797-8 (Version None)
Quarter: 2008Q1

REPORT INFORMATION
  Report Type: 
  Country: None (occurrence: None)
  Receive Date: 20080118
  Receipt Date: 20080108
  Transmission Date: 20080703
  Serious: Yes (Other)
  Sender: FDA-Public Use
  Company Number: US-PFIZER INC-2008003585

PATIENT

DRUGS (2)
  1. LYRICA [Suspect]
  2. WATER [Suspect]

REACTIONS (2)
  - BLOOD SODIUM DECREASED [None]
  - GLAUCOMA [None]
